FAERS Safety Report 6824429-7 (Version None)
Quarter: 2010Q3

REPORT INFORMATION
  Report Type: 
  Country: None (occurrence: None)
  Receive Date: 20100708
  Receipt Date: 20061024
  Transmission Date: 20110219
  Serious: Yes (Other)
  Sender: FDA-Public Use
  Company Number: US-PFIZER INC-2006131059

PATIENT
  Sex: Female
  Weight: 44.45 kg

DRUGS (14)
  1. CHANTIX [Suspect]
     Indication: SMOKING CESSATION THERAPY
     Dates: start: 20060901
  2. CENTRUM [Concomitant]
  3. NEXIUM [Concomitant]
  4. RISPERIDONE [Concomitant]
  5. DETROL LA [Concomitant]
  6. ADVAIR DISKUS 100/50 [Concomitant]
  7. ALBUTEROL SULFATE [Concomitant]
  8. ZYRTEC [Concomitant]
  9. XOPENEX [Concomitant]
  10. LORAZEPAM [Concomitant]
  11. VITAMIN B COMPLEX CAP [Concomitant]
  12. VITAMIN B-12 [Concomitant]
  13. NASONEX [Concomitant]
  14. CITALOPRAM HYDROBROMIDE [Concomitant]

REACTIONS (2)
  - AGITATION [None]
  - AMNESIA [None]
